FAERS Safety Report 16494188 (Version 1)
Quarter: 2019Q2

REPORT INFORMATION
  Report Type: Spontaneous
  Country: US (occurrence: US)
  Receive Date: 20190628
  Receipt Date: 20190628
  Transmission Date: 20190711
  Serious: No
  Sender: FDA-Public Use
  Company Number: US-SA-2019SA171670

PATIENT
  Sex: Male
  Weight: 47.62 kg

DRUGS (12)
  1. FABRAZYME [Suspect]
     Active Substance: AGALSIDASE BETA
     Indication: FABRY^S DISEASE
     Dosage: 45 MG, QOW (35MG/5MG VIAL)
     Route: 041
     Dates: start: 20181024
  2. STERILE WATER [Concomitant]
     Active Substance: WATER
     Indication: UNEVALUABLE THERAPY
     Dosage: UNK UNK, UNK
     Route: 065
     Dates: start: 20190619
  3. ALBUTEROL [SALBUTAMOL] [Concomitant]
     Active Substance: ALBUTEROL
     Dosage: 1 DF, PRN
     Route: 065
     Dates: start: 20190618
  4. ACETAMINOPHEN. [Concomitant]
     Active Substance: ACETAMINOPHEN
     Indication: PROTHROMBIN TIME PROLONGED
     Dosage: 325 MG, UNK
     Route: 065
     Dates: start: 20190619
  5. SODIUM CHLORIDE. [Concomitant]
     Active Substance: SODIUM CHLORIDE
     Indication: FLUSHING
     Dosage: 0.9 %, UNK
     Route: 065
     Dates: start: 20190619
  6. LMX [LIDOCAINE] [Concomitant]
     Dosage: 4 %, PRN
     Route: 065
     Dates: start: 20190619
  7. EPINEPHRINE. [Concomitant]
     Active Substance: EPINEPHRINE
     Indication: ANTINUCLEAR ANTIBODY
     Dosage: 0.3 MG, PRN
     Route: 065
     Dates: start: 20190619
  8. DIPHENHYDRAMINE. [Concomitant]
     Active Substance: DIPHENHYDRAMINE
     Indication: ANTINUCLEAR ANTIBODY
     Dosage: 25 MG, PRN
     Route: 065
     Dates: start: 20190616
  9. NORMAL SALINE [Concomitant]
     Active Substance: SODIUM CHLORIDE
     Indication: MEDICATION DILUTION
     Dosage: 0.9 %, UNK
     Route: 065
     Dates: start: 20190619
  10. SYMBICORT [Concomitant]
     Active Substance: BUDESONIDE\FORMOTEROL FUMARATE DIHYDRATE
     Dosage: 1 DF, TID
     Route: 065
     Dates: start: 20190618
  11. HEPARIN [Concomitant]
     Active Substance: HEPARIN SODIUM
     Indication: FLUSHING
     Dosage: 100 IU, UNK
     Route: 065
     Dates: start: 20190619
  12. PROAIR HFA [Concomitant]
     Active Substance: ALBUTEROL SULFATE
     Dosage: 2 DF, Q4H (Q4HP)
     Route: 065
     Dates: start: 20190618

REACTIONS (2)
  - Dyspnoea [Unknown]
  - Headache [Unknown]
